FAERS Safety Report 15035678 (Version 1)
Quarter: 2018Q2

REPORT INFORMATION
  Report Type: Spontaneous
  Country: AU (occurrence: AU)
  Receive Date: 20180620
  Receipt Date: 20180620
  Transmission Date: 20180711
  Serious: Yes (Other)
  Sender: FDA-Public Use
  Company Number: AU-MYLANLABS-2018M1041954

PATIENT
  Age: 15 Year
  Sex: Female

DRUGS (3)
  1. DROPERIDOL. [Suspect]
     Active Substance: DROPERIDOL
     Indication: DELIRIUM
     Dosage: 10 MG
     Route: 065
  2. LORAZEPAM. [Suspect]
     Active Substance: LORAZEPAM
     Indication: DELIRIUM
     Dosage: 8 MG
     Route: 065
  3. PROMETHAZINE [Suspect]
     Active Substance: PROMETHAZINE\PROMETHAZINE HYDROCHLORIDE
     Indication: PRODUCT USED FOR UNKNOWN INDICATION
     Dosage: 12.5 G
     Route: 048

REACTIONS (2)
  - Drug ineffective [Unknown]
  - Delirium [Recovered/Resolved]
